FAERS Safety Report 25859614 (Version 2)
Quarter: 2025Q4

REPORT INFORMATION
  Report Type: Spontaneous
  Country: US (occurrence: US)
  Receive Date: 20250929
  Receipt Date: 20251007
  Transmission Date: 20260118
  Serious: No
  Sender: DR REDDYS
  Company Number: US-DRL-USA-USA/2025/07/011464

PATIENT
  Age: 39 Year
  Sex: Female
  Weight: 79 kg

DRUGS (4)
  1. SUMATRIPTAN SUCCINATE [Suspect]
     Active Substance: SUMATRIPTAN SUCCINATE
     Indication: Migraine
     Route: 065
  2. SUMATRIPTAN SUCCINATE [Suspect]
     Active Substance: SUMATRIPTAN SUCCINATE
     Route: 065
  3. PROTONIX [Concomitant]
     Active Substance: PANTOPRAZOLE SODIUM
     Indication: Product used for unknown indication
     Dosage: AS NEEDED
  4. CLARITIN [Concomitant]
     Active Substance: LORATADINE
     Indication: Product used for unknown indication
     Dosage: DAILY

REACTIONS (2)
  - Expired product administered [Unknown]
  - Device defective [Unknown]
